FAERS Safety Report 7315428-X (Version None)
Quarter: 2011Q1

REPORT INFORMATION
  Report Type: 
  Country: None (occurrence: None)
  Receive Date: 20110225
  Receipt Date: 20110218
  Transmission Date: 20110831
  Serious: Yes (Hospitalization)
  Sender: FDA-Public Use
  Company Number: B0696632A

PATIENT
  Sex: Female
  Weight: 75 kg

DRUGS (6)
  1. TAVEGIL [Concomitant]
     Dates: start: 20101130
  2. KEVATRIL [Concomitant]
     Dates: start: 20101130
  3. LAPATINIB [Suspect]
     Dosage: 1250MG PER DAY
     Route: 048
     Dates: start: 20101130
  4. DEXAMETHASONE [Concomitant]
     Dates: start: 20101130
  5. PACLITAXEL [Suspect]
     Dosage: 149MG WEEKLY
     Route: 042
     Dates: start: 20101130
  6. RANITIDINE HCL [Concomitant]
     Dates: start: 20101130

REACTIONS (5)
  - OESOPHAGITIS [None]
  - MALNUTRITION [None]
  - STOMATITIS [None]
  - GENERAL PHYSICAL HEALTH DETERIORATION [None]
  - DEHYDRATION [None]
